FAERS Safety Report 24950274 (Version 1)
Quarter: 2025Q1

REPORT INFORMATION
  Report Type: Report from Study
  Country: US (occurrence: US)
  Receive Date: 20250210
  Receipt Date: 20250210
  Transmission Date: 20250409
  Serious: Yes (Other)
  Sender: ALEXION PHARMACEUTICALS
  Company Number: US-AstraZeneca-CH-00799887A

PATIENT
  Age: 60 Year
  Weight: 50.794 kg

DRUGS (9)
  1. OLAPARIB [Suspect]
     Active Substance: OLAPARIB
     Indication: Ovarian cancer
     Dosage: 150 MILLIGRAM, BID
  2. BETAMETHASONE [Concomitant]
     Active Substance: BETAMETHASONE
     Route: 065
  3. CLOBEX [Concomitant]
     Active Substance: CLOBETASOL PROPIONATE
     Route: 065
  4. COLCHICINE [Concomitant]
     Active Substance: COLCHICINE
     Route: 065
  5. FLUOCINOLONE [Concomitant]
     Active Substance: FLUOCINOLONE
     Route: 065
  6. IBUPROFEN [Concomitant]
     Active Substance: IBUPROFEN
     Route: 065
  7. METFORMIN [Concomitant]
     Active Substance: METFORMIN HYDROCHLORIDE
     Route: 065
  8. VALACYCLOVIR [Concomitant]
     Active Substance: VALACYCLOVIR HYDROCHLORIDE
     Route: 065
  9. PROTONIX [Concomitant]
     Active Substance: PANTOPRAZOLE SODIUM
     Route: 065

REACTIONS (2)
  - Pericardial effusion [Unknown]
  - Chest pain [Unknown]
